FAERS Safety Report 5107198-0 (Version None)
Quarter: 2006Q3

REPORT INFORMATION
  Report Type: 
  Country: None (occurrence: None)
  Receive Date: 20060913
  Receipt Date: 20060829
  Transmission Date: 20061208
  Serious: Yes (Hospitalization)
  Sender: FDA-Public Use
  Company Number: MED000050

PATIENT
  Age: 78 Year
  Sex: Female

DRUGS (2)
  1. TAZICEF [Suspect]
     Indication: ENDOPHTHALMITIS
     Dosage: 2 MG; CON
  2. VANCOMYCIN HCL [Suspect]
     Indication: ENDOPHTHALMITIS
     Dosage: CON

REACTIONS (4)
  - BLINDNESS [None]
  - ENDOPHTHALMITIS [None]
  - EYE PAIN [None]
  - STAPHYLOCOCCAL INFECTION [None]
